FAERS Safety Report 25734481 (Version 1)
Quarter: 2025Q3

REPORT INFORMATION
  Report Type: Spontaneous
  Country: US (occurrence: US)
  Receive Date: 20250828
  Receipt Date: 20250828
  Transmission Date: 20251021
  Serious: No
  Sender: ELITE
  Company Number: US-ELITEPHARMA-2025ELSPO00158

PATIENT
  Age: 48 Year
  Sex: Male
  Weight: 124 kg

DRUGS (1)
  1. LISDEXAMFETAMINE DIMESYLATE [Suspect]
     Active Substance: LISDEXAMFETAMINE DIMESYLATE
     Indication: Attention deficit hyperactivity disorder
     Route: 065

REACTIONS (1)
  - Drug ineffective [Unknown]
